FAERS Safety Report 5850427-6 (Version None)
Quarter: 2008Q3

REPORT INFORMATION
  Report Type: 
  Country: None (occurrence: None)
  Receive Date: 20080819
  Receipt Date: 20080807
  Transmission Date: 20090109
  Serious: Yes (Hospitalization, Other)
  Sender: FDA-Public Use
  Company Number: US-PFIZER INC-2008066343

PATIENT
  Sex: Male
  Weight: 29.545 kg

DRUGS (9)
  1. REVATIO [Suspect]
     Indication: PULMONARY HYPERTENSION
     Dosage: DAILY DOSE:20MG
     Route: 048
  2. DRUG, UNSPECIFIED [Suspect]
  3. DIGOXIN [Concomitant]
  4. TRACLEER [Concomitant]
  5. NEXIUM [Concomitant]
  6. FLOVENT [Concomitant]
  7. HYDROCORT [Concomitant]
  8. SINGULAIR ^DIECKMANN^ [Concomitant]
  9. ZYRTEC [Concomitant]

REACTIONS (8)
  - DRUG INEFFECTIVE [None]
  - DYSPNOEA [None]
  - GASTRIC DISORDER [None]
  - MALAISE [None]
  - NASOPHARYNGITIS [None]
  - RESPIRATORY TRACT CONGESTION [None]
  - SINUSITIS [None]
  - WHEEZING [None]
